FAERS Safety Report 22122082 (Version 4)
Quarter: 2023Q2

REPORT INFORMATION
  Report Type: Spontaneous
  Country: US (occurrence: US)
  Receive Date: 20230321
  Receipt Date: 20230414
  Transmission Date: 20230721
  Serious: Yes (Other)
  Sender: FDA-Public Use
  Company Number: US-Ipsen Biopharmaceuticals, Inc.-2023-06836

PATIENT
  Age: 41 Year
  Sex: Female
  Weight: 53.52 kg

DRUGS (5)
  1. DYSPORT [Suspect]
     Active Substance: ABOBOTULINUMTOXINA
     Indication: Skin wrinkling
     Dosage: 45 UNIT GLABELLA, 45 UNIT FRONTALIS AND 33 DIVIDED BETWEEN LATERAL EYE.
     Route: 030
     Dates: start: 20220823, end: 20220823
  2. DYSPORT [Suspect]
     Active Substance: ABOBOTULINUMTOXINA
     Indication: Skin wrinkling
     Dosage: 45 UNIT GLABELLA, 45 UNIT FRONTALIS AND 33 DIVIDED BETWEEN LATERAL EYE.
     Route: 030
     Dates: start: 20221122, end: 20221122
  3. DYSPORT [Suspect]
     Active Substance: ABOBOTULINUMTOXINA
     Indication: Off label use
     Dosage: 45 UNIT GLABELLA, 45 UNIT FRONTALIS AND 33 DIVIDED BETWEEN LATERAL EYE.
     Route: 030
     Dates: start: 20230221, end: 20230221
  4. DYSPORT [Suspect]
     Active Substance: ABOBOTULINUMTOXINA
     Indication: Skin wrinkling
  5. ARMOUR THYROID [Concomitant]
     Active Substance: THYROID, PORCINE
     Indication: Hypothyroidism

REACTIONS (10)
  - Suicidal ideation [Unknown]
  - Blood pressure increased [Unknown]
  - Palpitations [Unknown]
  - Asthenia [Unknown]
  - Diarrhoea [Unknown]
  - Headache [Unknown]
  - Dry eye [Unknown]
  - Insomnia [Unknown]
  - Feeling abnormal [Unknown]
  - Off label use [Unknown]

NARRATIVE: CASE EVENT DATE: 20220824
